FAERS Safety Report 6194130-4 (Version None)
Quarter: 2009Q2

REPORT INFORMATION
  Report Type: 
  Country: None (occurrence: None)
  Receive Date: 20090518
  Receipt Date: 20090513
  Transmission Date: 20091009
  Serious: Yes (Hospitalization)
  Sender: FDA-Public Use
  Company Number: PHHO2009US04053

PATIENT
  Sex: Female
  Weight: 59.864 kg

DRUGS (10)
  1. RAD 666 RAD+TAB+CMAS [Suspect]
     Indication: METASTATIC MALIGNANT MELANOMA
     Dosage: 10 MG/DAY
     Dates: start: 20080915
  2. BEVACIZUMAB [Suspect]
     Indication: METASTATIC MALIGNANT MELANOMA
     Dosage: 15 MG/M2, QD
     Route: 042
     Dates: start: 20080915
  3. LASIX [Concomitant]
  4. LIPITOR [Concomitant]
     Dosage: 10 MG/DAY
  5. TOPROL-XL [Concomitant]
     Dosage: 25 MG/DAY
  6. DIOVAN [Concomitant]
     Dosage: 25 MG/DAY
  7. LOTREL [Concomitant]
  8. SINGULAIR [Concomitant]
     Dosage: 10 MG/DAY
  9. COUMADIN [Concomitant]
  10. LORAZEPAM [Concomitant]

REACTIONS (5)
  - COAGULOPATHY [None]
  - EPISTAXIS [None]
  - INTERNATIONAL NORMALISED RATIO INCREASED [None]
  - OEDEMA [None]
  - RECTAL HAEMORRHAGE [None]
